FAERS Safety Report 5312516-4 (Version None)
Quarter: 2007Q2

REPORT INFORMATION
  Report Type: 
  Country: None (occurrence: None)
  Receive Date: 20070430
  Receipt Date: 20061215
  Transmission Date: 20071010
  Serious: No
  Sender: FDA-Public Use
  Company Number: 2006UW28077

PATIENT
  Age: 77 Year
  Sex: Female
  Weight: 95.3 kg

DRUGS (7)
  1. NEXIUM [Suspect]
     Indication: GASTROOESOPHAGEAL REFLUX DISEASE
     Route: 048
  2. SYNTHROID [Concomitant]
  3. SINGULAIR [Concomitant]
  4. ALLEGRA [Concomitant]
  5. LIBRAX [Concomitant]
  6. CELEBREX [Concomitant]
  7. ANTIBIOTICS [Concomitant]
     Indication: GASTROENTERITIS ESCHERICHIA COLI

REACTIONS (1)
  - GASTROENTERITIS ESCHERICHIA COLI [None]
